FAERS Safety Report 6230307-7 (Version None)
Quarter: 2009Q2

REPORT INFORMATION
  Report Type: 
  Country: None (occurrence: None)
  Receive Date: 20090615
  Receipt Date: 20090605
  Transmission Date: 20091009
  Serious: Yes (Hospitalization, Other)
  Sender: FDA-Public Use
  Company Number: US-MERCK-0604USA03996

PATIENT
  Age: 65 Year
  Sex: Female

DRUGS (19)
  1. FOSAMAX [Suspect]
     Indication: OSTEOPOROSIS
     Route: 048
     Dates: start: 20030101, end: 20060501
  2. FOSAMAX [Suspect]
     Route: 048
     Dates: start: 19990501, end: 20000301
  3. EVISTA [Concomitant]
     Route: 065
  4. DILANTIN [Concomitant]
     Route: 065
  5. NEXIUM [Concomitant]
     Route: 065
  6. ESTRING [Concomitant]
     Route: 065
  7. GLYCOLAX [Concomitant]
     Route: 065
  8. ZYRTEC [Concomitant]
     Route: 065
  9. OXYTROL [Concomitant]
     Route: 065
  10. VITAMINS (UNSPECIFIED) [Concomitant]
     Route: 065
  11. OMEGA-3 MARINE TRIGLYCERIDES [Concomitant]
     Route: 065
  12. CALTRATE + D [Concomitant]
     Route: 065
  13. MAGNESIUM (UNSPECIFIED) [Concomitant]
     Route: 065
  14. DITROPAN XL [Concomitant]
     Route: 065
  15. HEPATITIS A VIRUS VACCINE (UNSPECIFIED) [Concomitant]
     Route: 065
  16. HEPATITIS B VIRUS VACCINE (UNSPECIFIED) [Concomitant]
     Route: 065
  17. TETANUS TOXOID [Concomitant]
     Route: 065
  18. INFLUENZA VIRUS VACCINE (UNSPECIFIED) [Concomitant]
     Route: 065
  19. [THERAPY UNSPECIFIED] [Concomitant]
     Route: 065

REACTIONS (20)
  - ANXIETY [None]
  - BIPOLAR DISORDER [None]
  - BLADDER DISORDER [None]
  - CATARACT [None]
  - CATARACT OPERATION COMPLICATION [None]
  - CONSTIPATION [None]
  - DENTAL CARIES [None]
  - DEPRESSION [None]
  - DERMATITIS CONTACT [None]
  - EYELID DISORDER [None]
  - GASTRITIS [None]
  - GASTRODUODENITIS [None]
  - LOOSE TOOTH [None]
  - MENTAL DISORDER [None]
  - MICTURITION URGENCY [None]
  - NAUSEA [None]
  - OCCULT BLOOD [None]
  - OSTEONECROSIS [None]
  - TOOTH ABSCESS [None]
  - TOOTH FRACTURE [None]
